FAERS Safety Report 17525091 (Version 2)
Quarter: 2020Q1

REPORT INFORMATION
  Report Type: Spontaneous
  Country: US (occurrence: US)
  Receive Date: 20200310
  Receipt Date: 20200320
  Transmission Date: 20200409
  Serious: Yes (Other)
  Sender: FDA-Public Use
  Company Number: US-BAYER-2020-041649

PATIENT
  Age: 3 Decade
  Sex: Female

DRUGS (2)
  1. ORILISSA [Concomitant]
     Active Substance: ELAGOLIX SODIUM
  2. MIRENA [Suspect]
     Active Substance: LEVONORGESTREL
     Indication: CONTRACEPTION
     Dosage: 20 ?G PER DAY, CONTINUOUSLY
     Route: 015
     Dates: start: 201904

REACTIONS (3)
  - Pregnancy with contraceptive device [None]
  - Twin pregnancy [None]
  - Drug ineffective [None]
